FAERS Safety Report 7532303-6 (Version None)
Quarter: 2011Q2

REPORT INFORMATION
  Report Type: 
  Country: None (occurrence: None)
  Receive Date: 20110608
  Receipt Date: 20110603
  Transmission Date: 20111010
  Serious: Yes (Other)
  Sender: FDA-Public Use
  Company Number: ES-BRISTOL-MYERS SQUIBB COMPANY-15802275

PATIENT
  Age: 44 Year
  Sex: Female

DRUGS (3)
  1. ATAZANAVIR [Suspect]
     Indication: HIV INFECTION
     Route: 048
     Dates: start: 20080423, end: 20100715
  2. DICLOFENAC SODIUM [Suspect]
     Dates: start: 20091216, end: 20100715
  3. TRUVADA [Suspect]
     Dates: start: 20080423, end: 20100715

REACTIONS (1)
  - RENAL FAILURE [None]
